FAERS Safety Report 4943993-6 (Version None)
Quarter: 2006Q1

REPORT INFORMATION
  Report Type: 
  Country: None (occurrence: None)
  Receive Date: 20060310
  Receipt Date: 20060306
  Transmission Date: 20060701
  Serious: Yes (Other)
  Sender: FDA-Public Use
  Company Number: A0596281A

PATIENT
  Age: 69 Year
  Sex: Male

DRUGS (7)
  1. AVODART [Suspect]
     Indication: BENIGN PROSTATIC HYPERPLASIA
     Dosage: .5 MG / PER DAY / ORAL
     Route: 048
     Dates: start: 20051201, end: 20060306
  2. METOPROLOL TARTRATE [Concomitant]
  3. UNKNOWN [Concomitant]
  4. EZETIMIBE + SIMVASTATIN [Concomitant]
  5. LISINOPRIL [Concomitant]
  6. SAW PALMETTO [Concomitant]
  7. ALPRAZOLAM [Concomitant]

REACTIONS (1)
  - GENITAL CYST [None]
